FAERS Safety Report 4320747-5 (Version None)
Quarter: 2004Q1

REPORT INFORMATION
  Report Type: 
  Country: None (occurrence: None)
  Receive Date: 20040315
  Receipt Date: 20031107
  Transmission Date: 20041129
  Serious: Yes (Hospitalization)
  Sender: FDA-Public Use
  Company Number: USA030741924

PATIENT
  Age: 64 Year
  Sex: Female

DRUGS (8)
  1. GEMZAR [Suspect]
     Indication: NON-SMALL CELL LUNG CANCER
     Dosage: 1600 MG
     Dates: start: 20030401, end: 20030715
  2. NAVELBINE [Concomitant]
  3. METFORMIN HCL [Concomitant]
  4. GLUCOTROL [Concomitant]
  5. DIGOXIN [Concomitant]
  6. TOPROL-XL [Concomitant]
  7. PREMARIN [Concomitant]
  8. ASPIRIN [Concomitant]

REACTIONS (1)
  - RESPIRATORY DISTRESS [None]
